FAERS Safety Report 6478951-6 (Version None)
Quarter: 2009Q4

REPORT INFORMATION
  Report Type: 
  Country: None (occurrence: None)
  Receive Date: 20091207
  Receipt Date: 20090206
  Transmission Date: 20100525
  Serious: No
  Sender: FDA-Public Use
  Company Number: US-AMGEN-KDL332650

PATIENT
  Sex: Female

DRUGS (6)
  1. ENBREL [Suspect]
     Indication: JUVENILE ARTHRITIS
     Route: 058
     Dates: start: 20090201
  2. PREDNISONE [Suspect]
     Dates: start: 20090123
  3. NAPROSYN [Suspect]
     Dates: start: 20080209
  4. METHOTREXATE [Concomitant]
     Dates: start: 20081201
  5. MULTI-VITAMINS [Concomitant]
     Dates: start: 20081219
  6. FOLIC ACID [Concomitant]
     Dates: start: 20081219

REACTIONS (2)
  - DRY MOUTH [None]
  - EARLY MENARCHE [None]
